FAERS Safety Report 14554416 (Version 1)
Quarter: 2018Q1

REPORT INFORMATION
  Report Type: Spontaneous
  Country: US (occurrence: US)
  Receive Date: 20180217
  Receipt Date: 20180217
  Transmission Date: 20180509
  Serious: No
  Sender: FDA-Public Use
  Company Number: None

PATIENT
  Age: 73 Year
  Sex: Male
  Weight: 81 kg

DRUGS (1)
  1. ZOLIPIDEN [Suspect]
     Active Substance: ZOLPIDEM TARTRATE
     Dosage: ?          QUANTITY:1 TABLET(S);?
     Route: 048

REACTIONS (3)
  - Nightmare [None]
  - Poor quality sleep [None]
  - Insurance issue [None]

NARRATIVE: CASE EVENT DATE: 20180102
